FAERS Safety Report 9439939 (Version 1)
Quarter: 2013Q3

REPORT INFORMATION
  Report Type: Report from Study
  Country: US (occurrence: US)
  Receive Date: 20130805
  Receipt Date: 20130805
  Transmission Date: 20140515
  Serious: Yes (Hospitalization)
  Sender: FDA-Public Use
  Company Number: US-SANOFI-AVENTIS-2013SA077662

PATIENT
  Age: 36 Year
  Sex: Male

DRUGS (2)
  1. AUBAGIO [Suspect]
     Indication: MULTIPLE SCLEROSIS
     Route: 048
     Dates: end: 20130708
  2. FIORICET [Concomitant]
     Route: 065

REACTIONS (4)
  - Convulsion [Unknown]
  - Coma [Unknown]
  - Headache [Unknown]
  - Memory impairment [Unknown]
